FAERS Safety Report 14885583 (Version 1)
Quarter: 2018Q2

REPORT INFORMATION
  Report Type: Spontaneous
  Country: US (occurrence: US)
  Receive Date: 20180511
  Receipt Date: 20180511
  Transmission Date: 20180711
  Serious: No
  Sender: FDA-Public Use
  Company Number: US-009507513-1805USA003279

PATIENT
  Age: 23 Year
  Sex: Female

DRUGS (5)
  1. RALTEGRAVIR POTASSIUM [Suspect]
     Active Substance: RALTEGRAVIR POTASSIUM
     Dosage: UNK
     Route: 048
  2. ABACAVIR SULFATE (+) LAMIVUDINE [Suspect]
     Active Substance: ABACAVIR SULFATE\LAMIVUDINE
     Dosage: 1 DF
     Route: 048
  3. ZIDOVUDINE. [Suspect]
     Active Substance: ZIDOVUDINE
     Dosage: UNK
  4. ZIDOVUDINE. [Suspect]
     Active Substance: ZIDOVUDINE
     Dosage: 2 DF,
     Route: 042
  5. ETRAVIRINE [Suspect]
     Active Substance: ETRAVIRINE
     Dosage: UNK

REACTIONS (1)
  - Maternal exposure during pregnancy [Recovered/Resolved]
